FAERS Safety Report 15269114 (Version 1)
Quarter: 2018Q3

REPORT INFORMATION
  Report Type: Spontaneous
  Country: DE (occurrence: DE)
  Receive Date: 20180813
  Receipt Date: 20180813
  Transmission Date: 20181010
  Serious: Yes (Other)
  Sender: FDA-Public Use
  Company Number: DE-AMGEN-DEUSP2018108529

PATIENT
  Age: 51 Year

DRUGS (5)
  1. FULVESTRANT. [Suspect]
     Active Substance: FULVESTRANT
     Indication: PRODUCT USED FOR UNKNOWN INDICATION
     Dosage: UNK
     Route: 065
     Dates: start: 201802
  2. PALBOCICLIB [Suspect]
     Active Substance: PALBOCICLIB
     Indication: PRODUCT USED FOR UNKNOWN INDICATION
     Dosage: UNK
     Route: 065
     Dates: start: 201802
  3. EVEROLIMUS. [Concomitant]
     Active Substance: EVEROLIMUS
  4. XGEVA [Suspect]
     Active Substance: DENOSUMAB
     Indication: PRODUCT USED FOR UNKNOWN INDICATION
     Dosage: UNK
     Route: 065
     Dates: start: 201802
  5. EXEMESTAN [Concomitant]
     Active Substance: EXEMESTANE

REACTIONS (7)
  - Neoplasm progression [Unknown]
  - Dyspnoea exertional [Unknown]
  - Pleurectomy [Unknown]
  - Pleural effusion [Unknown]
  - Tumour marker increased [Unknown]
  - Dyspnoea at rest [Unknown]
  - Pleural neoplasm [Unknown]
